FAERS Safety Report 6042228-3 (Version None)
Quarter: 2009Q1

REPORT INFORMATION
  Report Type: 
  Country: None (occurrence: None)
  Receive Date: 20090116
  Receipt Date: 20090109
  Transmission Date: 20090719
  Serious: No
  Sender: FDA-Public Use
  Company Number: CA-JNJFOC-20090101277

PATIENT
  Sex: Female

DRUGS (7)
  1. TYLENOL W/ CODEINE NO. 2 [Suspect]
     Indication: BACK PAIN
     Dosage: 2 TABLETS A DAY
     Route: 065
  2. EFFEXOR [Concomitant]
     Indication: DRUG USE FOR UNKNOWN INDICATION
  3. ALTASE [Concomitant]
     Indication: DRUG USE FOR UNKNOWN INDICATION
  4. APO-RAMIPRIL [Concomitant]
     Indication: BLOOD PRESSURE
  5. ASPIRIN [Concomitant]
     Indication: DRUG USE FOR UNKNOWN INDICATION
  6. AMOXICILLIN AND CLAVULANATE POTASSIUM [Concomitant]
     Indication: SINUSITIS
  7. AUGMENTIN '125' [Concomitant]
     Indication: SINUSITIS

REACTIONS (2)
  - HEADACHE [None]
  - SINUSITIS [None]
